FAERS Safety Report 8236020 (Version 6)
Quarter: 2014Q2

REPORT INFORMATION
  Report Type: Spontaneous
  Country: US (occurrence: US)
  Receive Date: 20111108
  Receipt Date: 20140505
  Transmission Date: 20141212
  Serious: Yes (Hospitalization, Disabling, Other)
  Sender: FDA-Public Use
  Company Number: US-009507513-1111USA00633

PATIENT
  Sex: Female
  Weight: 71.2 kg

DRUGS (5)
  1. FOSAMAX [Suspect]
     Indication: OSTEOPOROSIS
     Dosage: 70 MG, UNK
     Route: 048
     Dates: start: 199908, end: 2008
  2. FOSAMAX [Suspect]
     Indication: OSTEOPENIA
     Dosage: 70 MG, QW
     Route: 048
     Dates: end: 2011
  3. FOSAMAX [Suspect]
     Indication: OSTEOPOROSIS
     Dosage: 70 MG, UNK
     Route: 048
     Dates: start: 200808, end: 201104
  4. FOSAMAX [Suspect]
     Indication: OSTEOPENIA
  5. ALENDRONATE SODIUM [Suspect]
     Indication: OSTEOPOROSIS
     Dosage: 70 MG, UNK
     Route: 048
     Dates: start: 2008, end: 20110430

REACTIONS (90)
  - Femur fracture [Not Recovered/Not Resolved]
  - Fracture delayed union [Not Recovered/Not Resolved]
  - Bone giant cell tumour [Unknown]
  - Basal cell carcinoma [Unknown]
  - Uterine cancer [Unknown]
  - Anaemia postoperative [Unknown]
  - Septic shock [Recovered/Resolved]
  - Incisional hernia repair [Unknown]
  - Clostridium difficile infection [Unknown]
  - Acute respiratory failure [Recovering/Resolving]
  - Urosepsis [Unknown]
  - Blood pressure decreased [Unknown]
  - Metabolic acidosis [Unknown]
  - Renal failure acute [Recovered/Resolved]
  - Bone giant cell tumour [Unknown]
  - Ileostomy closure [Unknown]
  - Pulmonary hypertension [Unknown]
  - Megacolon [Unknown]
  - Leukocytosis [Unknown]
  - Dyspnoea [Unknown]
  - Hyperkalaemia [Unknown]
  - Abdominal compartment syndrome [Unknown]
  - Wound drainage [Unknown]
  - Visual acuity reduced [Unknown]
  - Clostridium difficile colitis [Not Recovered/Not Resolved]
  - Hospitalisation [Unknown]
  - Malaise [Unknown]
  - Body temperature increased [Unknown]
  - Pyrexia [Unknown]
  - Asthenia [Unknown]
  - Dysuria [Unknown]
  - Hypertension [Not Recovered/Not Resolved]
  - Dysthymic disorder [Unknown]
  - Iron deficiency anaemia [Not Recovered/Not Resolved]
  - Chondropathy [Unknown]
  - Fall [Unknown]
  - Abdominal hernia [Not Recovered/Not Resolved]
  - Anxiety disorder [Unknown]
  - Hypokalaemia [Recovered/Resolved]
  - Depression [Unknown]
  - Cataract [Unknown]
  - Incontinence [Not Recovered/Not Resolved]
  - Fatigue [Not Recovered/Not Resolved]
  - Chest pain [Not Recovered/Not Resolved]
  - Dyspnoea [Not Recovered/Not Resolved]
  - Productive cough [Not Recovered/Not Resolved]
  - Wheezing [Not Recovered/Not Resolved]
  - Upper-airway cough syndrome [Unknown]
  - Dysuria [Not Recovered/Not Resolved]
  - Haematuria [Not Recovered/Not Resolved]
  - Skin ulcer [Not Recovered/Not Resolved]
  - Pollakiuria [Not Recovered/Not Resolved]
  - Cellulitis [Not Recovered/Not Resolved]
  - Decreased appetite [Not Recovered/Not Resolved]
  - Rhinitis [Unknown]
  - Paranasal sinus discomfort [Unknown]
  - Viral sinusitis [Unknown]
  - Osteoarthritis [Unknown]
  - Weight decreased [Unknown]
  - Osteomyelitis chronic [Not Recovered/Not Resolved]
  - Hyperaemia [Unknown]
  - Bone disorder [Unknown]
  - Fistula [Unknown]
  - Deep vein thrombosis [Unknown]
  - Venous thrombosis [Unknown]
  - Pleural effusion [Unknown]
  - Tracheal disorder [Unknown]
  - Polyp [Unknown]
  - Secretion discharge [Unknown]
  - Lung disorder [Unknown]
  - Ascites [Unknown]
  - Aortic arteriosclerosis [Unknown]
  - Hiatus hernia [Unknown]
  - Hysterectomy [Unknown]
  - Oestrogen deficiency [Unknown]
  - Phantom pain [Recovered/Resolved]
  - Eye disorder [Unknown]
  - Visual acuity reduced [Unknown]
  - Gastrointestinal disorder [Unknown]
  - Cataract [Unknown]
  - Arthritis [Unknown]
  - Anaemia [Unknown]
  - Diarrhoea [Not Recovered/Not Resolved]
  - Oedema peripheral [Not Recovered/Not Resolved]
  - Abdominal pain [Not Recovered/Not Resolved]
  - Constipation [Not Recovered/Not Resolved]
  - Nausea [Not Recovered/Not Resolved]
  - Vertigo [Unknown]
  - Dizziness [Unknown]
  - Diarrhoea [Not Recovered/Not Resolved]
